FAERS Safety Report 6694538-4 (Version None)
Quarter: 2010Q2

REPORT INFORMATION
  Report Type: 
  Country: None (occurrence: None)
  Receive Date: 20100420
  Receipt Date: 20100405
  Transmission Date: 20101027
  Serious: Yes (Hospitalization, Congenital Anomaly)
  Sender: FDA-Public Use
  Company Number: B0646595A

PATIENT
  Sex: Female

DRUGS (3)
  1. RETROVIR [Suspect]
     Indication: ANTIRETROVIRAL THERAPY
     Dosage: 2 MG/KG /FOUR TIMES PER DAY / ORAL
     Route: 048
  2. RETROVIR [Suspect]
     Indication: PROPHYLAXIS AGAINST HIV INFECTION
     Dosage: 500 MG / TRANSPLACENTARY
     Route: 064
  3. MULTI-VITAMIN [Concomitant]

REACTIONS (18)
  - ASPARTATE AMINOTRANSFERASE INCREASED [None]
  - ATRIAL SEPTAL DEFECT [None]
  - BLOOD ALBUMIN DECREASED [None]
  - BLOOD ALKALINE PHOSPHATASE INCREASED [None]
  - BLOOD BILIRUBIN INCREASED [None]
  - DEHYDRATION [None]
  - DIARRHOEA NEONATAL [None]
  - FAECES PALE [None]
  - GAMMA-GLUTAMYLTRANSFERASE INCREASED [None]
  - GROSS MOTOR DELAY [None]
  - HEPATOMEGALY [None]
  - JAUNDICE [None]
  - LACTIC ACIDOSIS [None]
  - MATERNAL DRUGS AFFECTING FOETUS [None]
  - METABOLIC ACIDOSIS [None]
  - NEONATAL ASPIRATION [None]
  - SMALL FOR DATES BABY [None]
  - VENTRICULAR SEPTAL DEFECT [None]
